FAERS Safety Report 10382088 (Version 1)
Quarter: 2014Q3

REPORT INFORMATION
  Report Type: Spontaneous
  Country: RO (occurrence: RO)
  Receive Date: 20140813
  Receipt Date: 20140813
  Transmission Date: 20150326
  Serious: Yes (Death, Life-Threatening, Hospitalization)
  Sender: FDA-Public Use
  Company Number: RO-ACTAVIS-2014-17424

PATIENT
  Age: 36 Year
  Sex: Female
  Weight: 41 kg

DRUGS (2)
  1. CAPECITABINE (UNKNOWN) [Suspect]
     Active Substance: CAPECITABINE
     Indication: MALIGNANT NEOPLASM OF AMPULLA OF VATER
     Dosage: 1250 MG/M2, CYCLICAL (BID FROM DAY 1 TO 14, FOLLOWED BY 1-WEEK DRUG HOLIDAY-IN A 21-DAYS CYCLE)
     Route: 048
  2. OXALIPLATIN (UNKNOWN) [Suspect]
     Active Substance: OXALIPLATIN
     Indication: MALIGNANT NEOPLASM OF AMPULLA OF VATER
     Dosage: 150 MG/M2, CYCLICAL (DILUTED IN A 5% GLUCOSE SOL.), OVER A 120 MIN ON DAY 1
     Route: 042

REACTIONS (5)
  - Myocardial fibrosis [Fatal]
  - Multi-organ failure [Fatal]
  - Non-alcoholic steatohepatitis [Not Recovered/Not Resolved]
  - Pancreatitis chronic [Not Recovered/Not Resolved]
  - Gastroenteritis [Not Recovered/Not Resolved]
